FAERS Safety Report 21302087 (Version 1)
Quarter: 2022Q3

REPORT INFORMATION
  Report Type: Report from Study
  Country: GT (occurrence: GT)
  Receive Date: 20220907
  Receipt Date: 20220907
  Transmission Date: 20221027
  Serious: Yes (Other)
  Sender: FDA-Public Use
  Company Number: GT-NOVARTISPH-NVSC2022GT201269

PATIENT
  Sex: Female

DRUGS (1)
  1. HYDROCHLOROTHIAZIDE\VALSARTAN [Suspect]
     Active Substance: HYDROCHLOROTHIAZIDE\VALSARTAN
     Indication: Hypertension
     Dosage: 160/25MG, QD
     Route: 048
     Dates: start: 2017

REACTIONS (2)
  - Dementia Alzheimer^s type [Not Recovered/Not Resolved]
  - Wrong technique in product usage process [Recovered/Resolved]
